FAERS Safety Report 23647896 (Version 4)
Quarter: 2025Q1

REPORT INFORMATION
  Report Type: Spontaneous
  Country: US (occurrence: US)
  Receive Date: 20240319
  Receipt Date: 20250129
  Transmission Date: 20250408
  Serious: No
  Sender: SANOFI AVENTIS
  Company Number: US-SA-SAC20240314000867

PATIENT
  Age: 65 Year
  Sex: Female

DRUGS (1)
  1. DUPIXENT [Suspect]
     Active Substance: DUPILUMAB
     Indication: Dermatitis atopic
     Dosage: 300 MG, QOW
     Route: 058

REACTIONS (8)
  - Respiratory tract infection viral [Unknown]
  - Infection [Unknown]
  - Dermatitis atopic [Unknown]
  - Dry skin [Recovering/Resolving]
  - Skin fissures [Recovering/Resolving]
  - Pruritus [Recovering/Resolving]
  - Skin irritation [Unknown]
  - Therapeutic response shortened [Unknown]

NARRATIVE: CASE EVENT DATE: 20241217
